FAERS Safety Report 5676596-9 (Version None)
Quarter: 2008Q1

REPORT INFORMATION
  Report Type: 
  Country: None (occurrence: None)
  Receive Date: 20080324
  Receipt Date: 20080312
  Transmission Date: 20080703
  Serious: Yes (Hospitalization)
  Sender: FDA-Public Use
  Company Number: GB-RANBAXY-2008RR-13776

PATIENT

DRUGS (1)
  1. IBUPROFEN [Suspect]
     Dosage: 200 MG, UNK
     Route: 048
     Dates: start: 20080202, end: 20080202

REACTIONS (4)
  - GLOSSITIS [None]
  - HAEMOPTYSIS [None]
  - OBSTRUCTIVE AIRWAYS DISORDER [None]
  - SWOLLEN TONGUE [None]
